FAERS Safety Report 20317847 (Version 1)
Quarter: 2022Q1

REPORT INFORMATION
  Report Type: Spontaneous
  Country: US (occurrence: None)
  Receive Date: 20220108
  Receipt Date: 20220108
  Transmission Date: 20220423
  Serious: Yes (Hospitalization)
  Sender: FDA-Public Use
  Company Number: None

PATIENT
  Age: 79 Year
  Sex: Male
  Weight: 83.25 kg

DRUGS (9)
  1. INCRUSE ELLIPTA [Suspect]
     Active Substance: UMECLIDINIUM BROMIDE
     Indication: Asthma
     Dosage: OTHER QUANTITY : 30 PUFF(S);?FREQUENCY : DAILY;?
     Route: 055
     Dates: start: 20210914, end: 20220105
  2. SYMBICORT [Concomitant]
     Active Substance: BUDESONIDE\FORMOTEROL FUMARATE DIHYDRATE
  3. CRESTOR [Concomitant]
     Active Substance: ROSUVASTATIN CALCIUM
  4. PANTOPRAZOLE [Concomitant]
     Active Substance: PANTOPRAZOLE
  5. GLUCOSAMINE [Concomitant]
     Active Substance: GLUCOSAMINE
  6. MUCINEX [Concomitant]
     Active Substance: GUAIFENESIN
  7. VITAMIN B12 [Concomitant]
     Active Substance: CYANOCOBALAMIN
  8. MAGNESIUM [Concomitant]
     Active Substance: MAGNESIUM
  9. ZINC [Concomitant]
     Active Substance: ZINC

REACTIONS (4)
  - Pneumonia [None]
  - Painful respiration [None]
  - Oropharyngeal pain [None]
  - Toothache [None]

NARRATIVE: CASE EVENT DATE: 20211218
